FAERS Safety Report 5363064-7 (Version None)
Quarter: 2007Q2

REPORT INFORMATION
  Report Type: 
  Country: None (occurrence: None)
  Receive Date: 20070615
  Receipt Date: 20070601
  Transmission Date: 20071010
  Serious: Yes (Hospitalization)
  Sender: FDA-Public Use
  Company Number: GRP07000050

PATIENT
  Age: 68 Year
  Sex: Female
  Weight: 62 kg

DRUGS (2)
  1. ACTONEL [Suspect]
     Indication: OSTEOPOROSIS
     Dosage: 35 MG, 1 /WEEK, ORAL
     Route: 048
     Dates: start: 20000101
  2. L-THYROX (LEVOTHYROXINE SODIUM) [Concomitant]

REACTIONS (4)
  - DRUG ADMINISTRATION ERROR [None]
  - GRAND MAL CONVULSION [None]
  - LEUKOENCEPHALOPATHY [None]
  - POSTICTAL PARALYSIS [None]
